FAERS Safety Report 16744136 (Version 2)
Quarter: 2019Q3

REPORT INFORMATION
  Report Type: Spontaneous
  Country: PT (occurrence: PT)
  Receive Date: 20190827
  Receipt Date: 20190903
  Transmission Date: 20191005
  Serious: Yes (Other)
  Sender: FDA-Public Use
  Company Number: PT-AUROBINDO-AUR-APL-2019-018338

PATIENT

DRUGS (3)
  1. HALOPERIDOL. [Suspect]
     Active Substance: HALOPERIDOL
     Indication: BIPOLAR DISORDER
     Dosage: 200 MILLIGRAM, PER MONTH
     Route: 065
  2. OLANZAPINE. [Suspect]
     Active Substance: OLANZAPINE
     Indication: BIPOLAR DISORDER
     Dosage: 10 GRAM, DAILY
     Route: 065
  3. VALPROIC ACID. [Suspect]
     Active Substance: VALPROIC ACID
     Indication: BIPOLAR DISORDER
     Dosage: 1000 MILLIGRAM, DAILY
     Route: 065

REACTIONS (12)
  - Speech disorder [Recovering/Resolving]
  - Gait disturbance [Recovering/Resolving]
  - Social avoidant behaviour [Recovering/Resolving]
  - Bradykinesia [Recovering/Resolving]
  - Apathy [Recovering/Resolving]
  - Depressive symptom [Recovering/Resolving]
  - Reduced facial expression [Recovering/Resolving]
  - Crying [Recovering/Resolving]
  - Depressed mood [Recovering/Resolving]
  - Off label use [Recovering/Resolving]
  - Extrapyramidal disorder [Recovered/Resolved]
  - Fall [Recovering/Resolving]
